FAERS Safety Report 7419254-2 (Version None)
Quarter: 2011Q2

REPORT INFORMATION
  Report Type: 
  Country: None (occurrence: None)
  Receive Date: 20110415
  Receipt Date: 20110407
  Transmission Date: 20111010
  Serious: Yes (Other)
  Sender: FDA-Public Use
  Company Number: US-AMGEN-USASP2011011464

PATIENT
  Age: 12 Month
  Sex: Male
  Weight: 10.5 kg

DRUGS (5)
  1. PROCRIT [Suspect]
     Dosage: 300 IU, 2 TIMES/WK
     Dates: start: 20080702
  2. IRON [Concomitant]
     Route: 042
  3. PROCRIT [Suspect]
     Dosage: 400 IU, 2 TIMES/WK
     Route: 058
  4. PROCRIT [Suspect]
     Indication: NEPHROGENIC ANAEMIA
     Dosage: UNK
  5. WHOLE BLOOD [Concomitant]

REACTIONS (8)
  - NEUTROPENIA [None]
  - MARROW HYPERPLASIA [None]
  - IRON DEFICIENCY [None]
  - RENAL FAILURE [None]
  - HYPERPARATHYROIDISM [None]
  - THERAPEUTIC RESPONSE DECREASED [None]
  - TRANSFUSION [None]
  - BLOOD TEST ABNORMAL [None]
